FAERS Safety Report 8470969-7 (Version None)
Quarter: 2012Q2

REPORT INFORMATION
  Report Type: 
  Country: None (occurrence: None)
  Receive Date: 20120323
  Receipt Date: 20110823
  Transmission Date: 20120825
  Serious: Yes (Hospitalization)
  Sender: FDA-Public Use
  Company Number: 163-21880-11082861

PATIENT
  Age: 68 Year
  Sex: Male

DRUGS (20)
  1. LOVAZA (OMEGA-3 MARINE TRIGLYCERIDES)(UNKNOWN) [Concomitant]
  2. VERAPAMIL [Concomitant]
  3. DECADRON [Concomitant]
  4. TAMSULOSIN HCL [Concomitant]
  5. TRAMADOL HCL [Concomitant]
  6. DIOVAN [Concomitant]
  7. PROPAFENONE (PROPAFENONE)(150 MILLIGRAM, UNKNOWN) [Concomitant]
  8. VITAMIN D (ERGOCALCIFEROL)(UNKNOWN) [Concomitant]
  9. STOOL SOFTENER (DOCUSATE SODIUM)(UNKNOWN) [Concomitant]
  10. MORPHINE [Concomitant]
  11. ZOMETA [Suspect]
     Indication: MULTIPLE MYELOMA
     Dosage: 4 MG, IV
     Route: 042
     Dates: start: 20090318, end: 20110531
  12. VESICARE (SOLIFENACIN SUCCINATE)(UNKNOWN) [Concomitant]
  13. INSULIN ASPART (INSULIN ASPART) [Concomitant]
  14. GLIPIZIDE [Concomitant]
  15. RANITIDINE [Concomitant]
  16. B COMPLEX VITAMINS (BECOSYM FORTE)(UNKNOWN) [Concomitant]
  17. OXYCODONE HCL [Concomitant]
  18. REVLIMID [Suspect]
     Indication: MULTIPLE MYELOMA
     Dosage: 25 MG, DAILY X 21 DAYS, PO
     Route: 048
     Dates: start: 20110502, end: 20110627
  19. CORDARONE [Concomitant]
  20. COUMADIN [Concomitant]

REACTIONS (6)
  - THROMBOCYTOPENIA [None]
  - ARTHRALGIA [None]
  - ANAEMIA [None]
  - NEUTROPENIA [None]
  - RENAL FAILURE [None]
  - ATRIAL FIBRILLATION [None]
